FAERS Safety Report 6376491-6 (Version None)
Quarter: 2009Q3

REPORT INFORMATION
  Report Type: 
  Country: None (occurrence: None)
  Receive Date: 20090922
  Receipt Date: 20090922
  Transmission Date: 20100115
  Serious: Yes (Life-Threatening, Hospitalization)
  Sender: FDA-Public Use
  Company Number: None

PATIENT
  Age: 48 Year
  Sex: Male
  Weight: 87 kg

DRUGS (2)
  1. METOCLOPRAMIDE 10 MG SICOR [Suspect]
     Indication: ABDOMINAL PAIN
     Dosage: 10 MG Q8H IV  ONCE
     Route: 042
     Dates: start: 20090909, end: 20090909
  2. METOCLOPRAMIDE 10 MG SICOR [Suspect]
     Indication: VOMITING
     Dosage: 10 MG Q8H IV  ONCE
     Route: 042
     Dates: start: 20090909, end: 20090909

REACTIONS (8)
  - ANOXIC ENCEPHALOPATHY [None]
  - CARDIO-RESPIRATORY ARREST [None]
  - CONVULSION [None]
  - ELECTROCARDIOGRAM QT PROLONGED [None]
  - ELECTROMECHANICAL DISSOCIATION [None]
  - HYPERTHERMIA [None]
  - MUSCLE RIGIDITY [None]
  - SUPRAVENTRICULAR TACHYCARDIA [None]
